FAERS Safety Report 10576678 (Version 1)
Quarter: 2014Q4

REPORT INFORMATION
  Report Type: Spontaneous
  Country: US (occurrence: US)
  Receive Date: 20141111
  Receipt Date: 20141111
  Transmission Date: 20150529
  Serious: Yes (Other)
  Sender: FDA-Public Use
  Company Number: US-JNJFOC-20141103394

PATIENT
  Sex: Male

DRUGS (1)
  1. XARELTO [Suspect]
     Active Substance: RIVAROXABAN
     Indication: DEEP VEIN THROMBOSIS
     Route: 048
     Dates: start: 2014, end: 2014

REACTIONS (4)
  - Swelling [Recovered/Resolved]
  - Adverse drug reaction [Recovered/Resolved]
  - Cognitive disorder [Recovered/Resolved]
  - Skin discolouration [Recovered/Resolved]

NARRATIVE: CASE EVENT DATE: 2014
